FAERS Safety Report 8890073 (Version 1)
Quarter: 2012Q4

REPORT INFORMATION
  Report Type: 
  Country: CA (occurrence: CA)
  Receive Date: 20121106
  Receipt Date: 20121106
  Transmission Date: 20130627
  Serious: Yes (Other)
  Sender: FDA-Public Use
  Company Number: PHHY2007CA011744

PATIENT
  Age: 63 Year

DRUGS (2)
  1. SANDOSTATIN LAR [Suspect]
     Route: 001
     Dates: start: 20020920
  2. SANDOSTATIN LAR [Suspect]
     Dates: start: 20070313

REACTIONS (3)
  - Blood pressure diastolic decreased [Unknown]
  - Weight increased [Unknown]
  - Diarrhoea [Unknown]
